FAERS Safety Report 24582323 (Version 1)
Quarter: 2024Q4

REPORT INFORMATION
  Report Type: Report from Study
  Country: US (occurrence: US)
  Receive Date: 20241105
  Receipt Date: 20241105
  Transmission Date: 20250114
  Serious: Yes (Other)
  Sender: JOHNSON AND JOHNSON
  Company Number: US-JNJFOC-20241082610

PATIENT
  Age: 3 Decade
  Sex: Female

DRUGS (2)
  1. SPRAVATO [Suspect]
     Active Substance: ESKETAMINE
     Indication: Depression
     Dosage: 56 MG, TOTAL OF 4 DOSES
     Dates: start: 20200401, end: 20200410
  2. SPRAVATO [Suspect]
     Active Substance: ESKETAMINE
     Dosage: 84 MG, TOTAL OF 112 DOSES
     Dates: start: 20200415, end: 20241018

REACTIONS (1)
  - Intervertebral disc protrusion [Recovering/Resolving]
